FAERS Safety Report 11200591 (Version 1)
Quarter: 2015Q2

REPORT INFORMATION
  Report Type: Spontaneous
  Country: US (occurrence: US)
  Receive Date: 20150618
  Receipt Date: 20150618
  Transmission Date: 20150821
  Serious: No
  Sender: FDA-Public Use
  Company Number: US-TARO-2014TAR00290

PATIENT
  Sex: Male
  Weight: 90.25 kg

DRUGS (6)
  1. CLOBETASOL PROPIONATE CREAM USP 0.05% (EMOLLIENT) [Suspect]
     Active Substance: CLOBETASOL PROPIONATE
     Dosage: UNK, 3X/DAY
     Route: 061
  2. CLOBETASOL PROPIONATE CREAM USP 0.05% (EMOLLIENT) [Suspect]
     Active Substance: CLOBETASOL PROPIONATE
     Dosage: UNK UNK, 2X/DAY
     Route: 061
     Dates: start: 2006
  3. CLOBETASOL PROPIONATE CREAM USP 0.05% (EMOLLIENT) [Suspect]
     Active Substance: CLOBETASOL PROPIONATE
     Dosage: UNK, 3X/DAY
     Route: 061
  4. CLOBETASOL PROPIONATE CREAM USP 0.05% (EMOLLIENT) [Suspect]
     Active Substance: CLOBETASOL PROPIONATE
     Indication: PSORIASIS
     Dosage: UNK UNK, 2X/DAY
     Route: 061
     Dates: start: 2006
  5. SIMVASTATIN. [Concomitant]
     Active Substance: SIMVASTATIN
     Dosage: 20 MG, 1X/DAY
     Dates: start: 201402
  6. METFORMIN [Concomitant]
     Active Substance: METFORMIN HYDROCHLORIDE
     Dosage: 1000 MG, 2X/DAY
     Dates: start: 2013

REACTIONS (2)
  - Product quality issue [Not Recovered/Not Resolved]
  - Drug ineffective [Not Recovered/Not Resolved]

NARRATIVE: CASE EVENT DATE: 2014
